FAERS Safety Report 7074884-5 (Version None)
Quarter: 2010Q4

REPORT INFORMATION
  Report Type: 
  Country: None (occurrence: None)
  Receive Date: 20101029
  Receipt Date: 20101025
  Transmission Date: 20110411
  Serious: Yes (Death, Other)
  Sender: FDA-Public Use
  Company Number: PHHY2010US71848

PATIENT
  Age: 82 Year
  Sex: Male

DRUGS (1)
  1. AFINITOR [Suspect]
     Indication: METASTATIC RENAL CELL CARCINOMA
     Dosage: 10 MG, QD
     Route: 048

REACTIONS (6)
  - ANAEMIA [None]
  - BONE PAIN [None]
  - DEATH [None]
  - FATIGUE [None]
  - METASTASES TO BONE [None]
  - OEDEMA [None]
